FAERS Safety Report 12886017 (Version 4)
Quarter: 2017Q1

REPORT INFORMATION
  Report Type: Report from Study
  Country: CO (occurrence: CO)
  Receive Date: 20161026
  Receipt Date: 20170210
  Transmission Date: 20170428
  Serious: Yes (Other)
  Sender: FDA-Public Use
  Company Number: CO-SA-2016SA193393

PATIENT
  Age: 37 Year
  Sex: Female

DRUGS (1)
  1. LEMTRADA [Suspect]
     Active Substance: ALEMTUZUMAB
     Indication: MULTIPLE SCLEROSIS
     Route: 042
     Dates: start: 20160810, end: 20160814

REACTIONS (10)
  - Leukopenia [Not Recovered/Not Resolved]
  - Leukocyturia [Not Recovered/Not Resolved]
  - Bacterial test [Not Recovered/Not Resolved]
  - Monocyte count increased [Not Recovered/Not Resolved]
  - Urinary sediment present [Not Recovered/Not Resolved]
  - Urine analysis abnormal [Not Recovered/Not Resolved]
  - Specific gravity urine increased [Not Recovered/Not Resolved]
  - Lymphopenia [Not Recovered/Not Resolved]
  - Eosinophilia [Not Recovered/Not Resolved]
  - Urine abnormality [Not Recovered/Not Resolved]

NARRATIVE: CASE EVENT DATE: 201609
